FAERS Safety Report 10995560 (Version 1)
Quarter: 2015Q2

REPORT INFORMATION
  Report Type: Spontaneous
  Country: DE (occurrence: DE)
  Receive Date: 20150407
  Receipt Date: 20150407
  Transmission Date: 20150821
  Serious: Yes (Death, Other)
  Sender: FDA-Public Use
  Company Number: DE-GLAXOSMITHKLINE-DE2015GSK046116

PATIENT
  Age: 11 Year
  Sex: Male

DRUGS (6)
  1. METHOTREXATE [Suspect]
     Active Substance: METHOTREXATE
     Indication: T-CELL TYPE ACUTE LEUKAEMIA
     Dosage: UNK UNK, SINGLE
     Route: 037
  2. PREDNISOLONE. [Concomitant]
     Active Substance: PREDNISOLONE
     Indication: T-CELL TYPE ACUTE LEUKAEMIA
     Dosage: UNK, SINGLE
     Route: 037
  3. ETOPOSIDE. [Concomitant]
     Active Substance: ETOPOSIDE
     Indication: T-CELL TYPE ACUTE LEUKAEMIA
  4. CYTARABINE. [Concomitant]
     Active Substance: CYTARABINE
     Indication: T-CELL TYPE ACUTE LEUKAEMIA
     Dosage: UNK UNK, SINGLE
     Route: 037
  5. NELARABINE [Suspect]
     Active Substance: NELARABINE
     Indication: T-CELL TYPE ACUTE LEUKAEMIA
  6. CYCLOPHOSPHAMIDE. [Concomitant]
     Active Substance: CYCLOPHOSPHAMIDE
     Indication: T-CELL TYPE ACUTE LEUKAEMIA

REACTIONS (21)
  - Neurotoxicity [Fatal]
  - Guillain-Barre syndrome [Unknown]
  - Hyporeflexia [Unknown]
  - Necrosis [Fatal]
  - Pain [Unknown]
  - Motor dysfunction [Unknown]
  - Hyperreflexia [Unknown]
  - Blast cell proliferation [Fatal]
  - Areflexia [Unknown]
  - Myalgia [Unknown]
  - Generalised tonic-clonic seizure [Unknown]
  - Dysaesthesia [Unknown]
  - Resuscitation [Unknown]
  - Neurological symptom [Fatal]
  - Cytotoxic oedema [Unknown]
  - Gliosis [Unknown]
  - Seizure [Unknown]
  - Aspiration [Unknown]
  - Demyelination [Fatal]
  - Partial seizures [Unknown]
  - Sensory loss [Unknown]
